FAERS Safety Report 9962965 (Version 1)
Quarter: 2014Q1

REPORT INFORMATION
  Report Type: Spontaneous
  Country: TR (occurrence: TR)
  Receive Date: 20140305
  Receipt Date: 20140305
  Transmission Date: 20141002
  Serious: Yes (Other)
  Sender: FDA-Public Use
  Company Number: TR-PFIZER INC-2014059361

PATIENT
  Age: 48 Year
  Sex: Male

DRUGS (2)
  1. SUTENT [Suspect]
     Indication: RENAL CELL CARCINOMA
     Dosage: 50 MG, 4/6 WEEKS
     Dates: start: 201301
  2. SUTENT [Suspect]
     Dosage: UNK
     Dates: start: 201310

REACTIONS (4)
  - Hepatitis B [Unknown]
  - Liver function test abnormal [Unknown]
  - Blood glucose increased [Unknown]
  - Hypertriglyceridaemia [Unknown]
